APPROVED DRUG PRODUCT: QBREXZA
Active Ingredient: GLYCOPYRRONIUM TOSYLATE
Strength: EQ 2.4% BASE
Dosage Form/Route: CLOTH;TOPICAL
Application: N210361 | Product #001
Applicant: JOURNEY MEDICAL CORP
Approved: Jun 28, 2018 | RLD: Yes | RS: Yes | Type: RX

PATENTS:
Patent 10052267 | Expires: Oct 17, 2028
Patent 8859610 | Expires: Feb 28, 2033
Patent 9259414 | Expires: Feb 28, 2033
Patent 9744105 | Expires: Jul 18, 2030
Patent 10004717 | Expires: Feb 28, 2033
Patent 8618160 | Expires: Dec 10, 2029
Patent 10548875 | Expires: Feb 28, 2033
Patent 10543192 | Expires: Feb 28, 2033